FAERS Safety Report 22073239 (Version 2)
Quarter: 2023Q1

REPORT INFORMATION
  Report Type: Report from Study
  Country: US (occurrence: US)
  Receive Date: 20230308
  Receipt Date: 20230313
  Transmission Date: 20230417
  Serious: No
  Sender: FDA-Public Use
  Company Number: US-002147023-NVSC2023US049759

PATIENT
  Sex: Female

DRUGS (1)
  1. HYDROCORTISONE [Suspect]
     Active Substance: HYDROCORTISONE
     Indication: Psoriasis
     Dosage: 2.5 %
     Route: 061

REACTIONS (5)
  - Papule [Unknown]
  - Skin exfoliation [Unknown]
  - Psoriasis [Unknown]
  - Melanocytic naevus [Unknown]
  - Mechanical urticaria [Unknown]
